FAERS Safety Report 10736742 (Version 1)
Quarter: 2015Q1

REPORT INFORMATION
  Report Type: Spontaneous
  Country: CA (occurrence: None)
  Receive Date: 20150122
  Receipt Date: 20150122
  Transmission Date: 20150721
  Serious: Yes (Life-Threatening, Hospitalization)
  Sender: FDA-Public Use
  Company Number: 2015010167

PATIENT
  Age: 63 Year
  Sex: Male

DRUGS (4)
  1. DIAZEPAM (DIAZEPAM) [Suspect]
     Active Substance: DIAZEPAM
     Route: 048
  2. QUETIAPINE [Suspect]
     Active Substance: QUETIAPINE
     Route: 048
  3. SUBLINOX [Suspect]
     Active Substance: ZOLPIDEM TARTRATE
     Route: 048
  4. XARELTO [Suspect]
     Active Substance: RIVAROXABAN
     Route: 048

REACTIONS (3)
  - Intentional overdose [None]
  - Thrombocytopenia [None]
  - Suicide attempt [None]
